FAERS Safety Report 20634846 (Version 1)
Quarter: 2022Q1

REPORT INFORMATION
  Report Type: Report from Study
  Country: CA (occurrence: CA)
  Receive Date: 20220325
  Receipt Date: 20220325
  Transmission Date: 20220424
  Serious: Yes (Other)
  Sender: FDA-Public Use
  Company Number: CA-SA-SAC20220322000302

PATIENT
  Age: 36 Year
  Sex: Female

DRUGS (9)
  1. TERIFLUNOMIDE [Suspect]
     Active Substance: TERIFLUNOMIDE
     Indication: Relapsing-remitting multiple sclerosis
     Dosage: 14 MG, QD
     Route: 048
     Dates: start: 20190207
  2. ROSUVASTATIN [Concomitant]
     Active Substance: ROSUVASTATIN
  3. AMLODIPINE [Concomitant]
     Active Substance: AMLODIPINE BESYLATE
  4. RAMIPRIL [Concomitant]
     Active Substance: RAMIPRIL
  5. MODAFINIL [Concomitant]
     Active Substance: MODAFINIL
     Dosage: UNK
  6. PANTOPRAZOLE [Concomitant]
     Active Substance: PANTOPRAZOLE
     Dosage: UNK
  7. TRIMETHOPRIM [Concomitant]
     Active Substance: TRIMETHOPRIM
  8. BOTOX [Concomitant]
     Active Substance: ONABOTULINUMTOXINA
  9. VITAMIN D NOS [Concomitant]
     Active Substance: VITAMIN D NOS

REACTIONS (1)
  - Diabetes mellitus [Recovered/Resolved]

NARRATIVE: CASE EVENT DATE: 20210901
